FAERS Safety Report 8603990-6 (Version None)
Quarter: 2012Q3

REPORT INFORMATION
  Report Type: 
  Country: None (occurrence: None)
  Receive Date: 20120820
  Receipt Date: 20120808
  Transmission Date: 20120928
  Serious: No
  Sender: FDA-Public Use
  Company Number: US-BIOGENIDEC-2012BI012812

PATIENT
  Sex: Male

DRUGS (1)
  1. TYSABRI [Suspect]
     Indication: MULTIPLE SCLEROSIS
     Route: 042
     Dates: start: 20111020

REACTIONS (5)
  - MEMORY IMPAIRMENT [None]
  - FALL [None]
  - TINNITUS [None]
  - MUSCULOSKELETAL DISORDER [None]
  - HYPOAESTHESIA [None]
